FAERS Safety Report 5611831-4 (Version None)
Quarter: 2008Q1

REPORT INFORMATION
  Report Type: 
  Country: None (occurrence: None)
  Receive Date: 20080128
  Receipt Date: 20080118
  Transmission Date: 20080703
  Serious: Yes (Death)
  Sender: FDA-Public Use
  Company Number: SPV1-2008-00027

PATIENT
  Age: 21 Year
  Sex: Male
  Weight: 28 kg

DRUGS (3)
  1. IDURSULFASE(IDURSULFASE) CONCENTRATE FOR SOLUTION FOR INFUSION [Suspect]
     Indication: MUCOPOLYSACCHARIDOSIS II
     Dosage: 12 MG, 1X/WEEK, IV DRIP
     Route: 041
     Dates: start: 20071024, end: 20080104
  2. NITRAZEPAM [Concomitant]
  3. VALPROATE SODIUM [Concomitant]

REACTIONS (1)
  - TRACHEAL HAEMORRHAGE [None]
